FAERS Safety Report 7233985 (Version 6)
Quarter: 2013Q1

REPORT INFORMATION
  Report Type: Spontaneous
  Country: US (occurrence: US)
  Receive Date: 20091230
  Receipt Date: 20130214
  Transmission Date: 20140127
  Serious: Yes (Death, Other)
  Sender: FDA-Public Use
  Company Number: US-BAYER-200943573NA

PATIENT
  Age: 55 Year
  Sex: Male
  Weight: 97.5 kg

DRUGS (37)
  1. TRASYLOL [Suspect]
     Indication: CARDIAC OPERATION
     Dosage: 200 ML, OVER 30 MINUTES
     Route: 042
     Dates: start: 20040210, end: 20040210
  2. TRASYLOL [Suspect]
     Indication: AORTIC DISSECTION
     Dosage: 50ML/HR
     Route: 042
     Dates: start: 20040210, end: 20040210
  3. TRASYLOL [Suspect]
     Indication: CARDIAC OPERATION
     Dosage: 200ML, PUMP PRIME
     Route: 042
     Dates: start: 20040210, end: 20040210
  4. ACETYLSALICYLIC ACID [Concomitant]
     Route: 048
  5. METOPROLOL [Concomitant]
     Route: 048
  6. AMIODARONE [Concomitant]
     Dosage: UNK
     Route: 048
  7. AMIODARONE [Concomitant]
     Dosage: 150 MG, BOLUS THEN DRIP
     Route: 042
     Dates: start: 20040210
  8. CLONIDINE [Concomitant]
     Route: 048
  9. NEXIUM [Concomitant]
     Route: 048
  10. SIMVASTATIN [Concomitant]
     Route: 048
  11. AMLODIPINE [Concomitant]
     Route: 048
  12. ANCEF [Concomitant]
     Dosage: 2 G, UNK
     Route: 042
     Dates: start: 20040210
  13. HEPARIN [Concomitant]
     Dosage: 5000 U, UNK
     Route: 042
     Dates: start: 20040210, end: 20040210
  14. VASOPRESSIN [Concomitant]
     Dosage: UNK
     Route: 042
     Dates: start: 20040210
  15. EPINEPHRINE [Concomitant]
     Dosage: DRIP
     Route: 042
     Dates: start: 20040210, end: 20040210
  16. MAGNESIUM SULFATE [Concomitant]
     Dosage: 2 G, BID
     Route: 042
     Dates: start: 20040210, end: 20040210
  17. ATROPINE [Concomitant]
     Dosage: 0.4 MG, UNK
     Route: 042
     Dates: start: 20040210, end: 20040210
  18. LIDOCAINE [Concomitant]
     Dosage: 100 MG, UNK
     Dates: start: 20040210, end: 20040210
  19. PROTAMINE [Concomitant]
     Dosage: 200 MG, UNK
     Route: 042
     Dates: start: 20040210, end: 20040210
  20. PROTAMINE [Concomitant]
     Dosage: 50 MG, BID
     Route: 042
     Dates: start: 20040210, end: 20040210
  21. BUMEX [Concomitant]
     Dosage: UNK
     Dates: start: 20040211
  22. BUMEX [Concomitant]
     Dosage: 1 MG, PRN
     Dates: start: 20040212
  23. PACKED RED BLOOD CELLS [Concomitant]
     Dosage: 4 U, UNK
     Route: 042
     Dates: start: 20040210
  24. PLATELETS, HUMAN BLOOD [Concomitant]
     Dosage: 2 U, UNK
     Dates: start: 20040210
  25. PLASMA, FRESH FROZEN [Concomitant]
     Dosage: 4 U, UNK
     Dates: start: 20040210
  26. LISINOPRIL [Concomitant]
     Dosage: 20 MG, UNK
  27. ALPRAZOLAM [Concomitant]
     Dosage: 0.5 MG, BID
  28. CITALOPRAM [Concomitant]
  29. LEXAPRO [Concomitant]
     Dosage: 10 MG, UNK
  30. CATAPRES [Concomitant]
     Dosage: 0.3 MG, UNK
  31. SOLU MEDROL [Concomitant]
     Dosage: 125 MG, UNK
     Route: 042
     Dates: start: 20040210
  32. DILAUDID [Concomitant]
     Dosage: 1.5 MG, UNK
     Route: 042
     Dates: start: 20040210
  33. LABETALOL [Concomitant]
     Dosage: UNK
     Route: 042
     Dates: start: 20040210
  34. MILRINONE [Concomitant]
  35. DOPAMINE [Concomitant]
  36. INSULIN [Concomitant]
  37. BUMEX [Concomitant]

REACTIONS (6)
  - Renal failure [Fatal]
  - Renal failure [Unknown]
  - Injury [Unknown]
  - Pain [Unknown]
  - Unevaluable event [Unknown]
  - Off label use [None]
